FAERS Safety Report 24990476 (Version 1)
Quarter: 2025Q1

REPORT INFORMATION
  Report Type: Spontaneous
  Country: US (occurrence: None)
  Receive Date: 20250220
  Receipt Date: 20250220
  Transmission Date: 20250409
  Serious: Yes (unspecified)
  Sender: FDA-CTU
  Company Number: None

PATIENT
  Age: 22 Year
  Sex: Male
  Weight: 67.5 kg

DRUGS (16)
  1. REXULTI [Suspect]
     Active Substance: BREXPIPRAZOLE
     Indication: Depression
     Dosage: OTHER QUANTITY : 1 TABLET(S);?FREQUENCY : AT BEDTIME;?
     Route: 048
     Dates: start: 20250115, end: 20250219
  2. REXULTI [Suspect]
     Active Substance: BREXPIPRAZOLE
     Indication: Obsessive-compulsive disorder
  3. CLONAZEPAM [Concomitant]
     Active Substance: CLONAZEPAM
  4. TEMAZEPAM [Concomitant]
     Active Substance: TEMAZEPAM
  5. GABAPENTIN [Concomitant]
     Active Substance: GABAPENTIN
  6. BACLOFEN [Concomitant]
     Active Substance: BACLOFEN
  7. dextroamphetamine 60mg [Concomitant]
  8. SERTRALINE HYDROCHLORIDE [Concomitant]
     Active Substance: SERTRALINE HYDROCHLORIDE
  9. GUANFACINE [Concomitant]
     Active Substance: GUANFACINE
  10. Magnesium glycine [Concomitant]
  11. ASCORBIC ACID [Concomitant]
     Active Substance: ASCORBIC ACID
  12. IRON [Concomitant]
     Active Substance: IRON
  13. OMEGA 3 [Concomitant]
     Active Substance: CAPSAICIN
  14. VITAMIN D3 [Concomitant]
     Active Substance: CHOLECALCIFEROL
  15. VITAMIN B COMPLEX [Concomitant]
     Active Substance: CYANOCOBALAMIN\DEXPANTHENOL\NIACINAMIDE\PYRIDOXINE HYDROCHLORIDE\RIBOFLAVIN 5^-PHOSPHATE SODIUM\THIA
  16. MELATONIN [Concomitant]
     Active Substance: MELATONIN

REACTIONS (3)
  - Atrial fibrillation [None]
  - Neuroleptic malignant syndrome [None]
  - Autonomic nervous system imbalance [None]

NARRATIVE: CASE EVENT DATE: 20250208
